FAERS Safety Report 4860797-3 (Version None)
Quarter: 2005Q4

REPORT INFORMATION
  Report Type: 
  Country: None (occurrence: None)
  Receive Date: 20051216
  Receipt Date: 20051216
  Transmission Date: 20060501
  Serious: Yes (Other)
  Sender: FDA-Public Use
  Company Number: None

PATIENT
  Age: 57 Year
  Sex: Male
  Weight: 117.9352 kg

DRUGS (8)
  1. STRATTERA [Suspect]
     Indication: ATTENTION DEFICIT/HYPERACTIVITY DISORDER
     Dosage: 80 MG   DAILY AM    PO
     Route: 048
  2. STRATTERA [Suspect]
     Indication: FIBROMYALGIA
     Dosage: 80 MG   DAILY AM    PO
     Route: 048
  3. PAROXETINE HCL [Suspect]
     Indication: PANIC DISORDER
     Dosage: 30 MG   DAILY PM   PO
     Route: 048
  4. PAROXETINE HCL [Suspect]
     Indication: SOMNOLENCE
     Dosage: 30 MG   DAILY PM   PO
     Route: 048
  5. CELEBREX [Concomitant]
  6. ZANAFLEX [Concomitant]
  7. NORVASC [Concomitant]
  8. LEVOXYL [Concomitant]

REACTIONS (6)
  - FIBROMYALGIA [None]
  - HOMICIDAL IDEATION [None]
  - LEGAL PROBLEM [None]
  - MULTIPLE DRUG OVERDOSE [None]
  - STRESS [None]
  - UNEVALUABLE EVENT [None]
